FAERS Safety Report 9507171 (Version 2)
Quarter: 2013Q3

REPORT INFORMATION
  Report Type: Spontaneous
  Country: US (occurrence: None)
  Receive Date: 20130904
  Receipt Date: 20130917
  Transmission Date: 20140515
  Serious: Yes (Other)
  Sender: FDA-Public Use
  Company Number: 2013P1018855

PATIENT
  Age: 81 Year
  Sex: Female

DRUGS (2)
  1. INFUMORPH [Suspect]
     Indication: ILL-DEFINED DISORDER
     Route: 037
  2. INFUMORPH [Suspect]
     Indication: PAIN
     Route: 037

REACTIONS (2)
  - Medical device removal [None]
  - Unevaluable event [None]
